FAERS Safety Report 10262270 (Version 1)
Quarter: 2014Q2

REPORT INFORMATION
  Report Type: Spontaneous
  Country: EC (occurrence: EC)
  Receive Date: 20140626
  Receipt Date: 20140626
  Transmission Date: 20141212
  Serious: Yes (Other)
  Sender: FDA-Public Use
  Company Number: EC-PFIZER INC-2014171508

PATIENT
  Age: 67 Year
  Sex: Female

DRUGS (1)
  1. EPAMIN [Suspect]
     Dosage: 100 MG, 3X/DAY
     Route: 048
     Dates: start: 1959

REACTIONS (5)
  - Blindness [Unknown]
  - Visual acuity reduced [Unknown]
  - Renal disorder [Unknown]
  - Swelling [Unknown]
  - Headache [Unknown]
